FAERS Safety Report 9838562 (Version 1)
Quarter: 2013Q4

REPORT INFORMATION
  Report Type: Spontaneous
  Country: US (occurrence: None)
  Receive Date: 20131206
  Receipt Date: 20131206
  Transmission Date: 20140711
  Serious: Yes (Other)
  Sender: FDA-Public Use
  Company Number: 384903

PATIENT
  Age: 55 Year
  Sex: Male

DRUGS (2)
  1. NOVOLOG MIX 70/30 FLEXPEN [Suspect]
     Indication: TYPE 2 DIABETES MELLITUS
     Dosage: WITH EACH MEAL
     Route: 058
  2. NOVOLOG FLEXPEN (INSULIN ASPART) SOLUTION FOR INJECTION, 100 U/ML [Suspect]
     Dosage: WITH EACH MEAL
     Route: 058

REACTIONS (3)
  - Diabetic coma [None]
  - Limb injury [None]
  - Blood glucose fluctuation [None]
